FAERS Safety Report 9309862 (Version 1)
Quarter: 2013Q2

REPORT INFORMATION
  Report Type: Spontaneous
  Country: US (occurrence: US)
  Receive Date: 20130525
  Receipt Date: 20130525
  Transmission Date: 20140414
  Serious: No
  Sender: FDA-Public Use
  Company Number: US-ASTRAZENECA-2013SE33711

PATIENT
  Sex: Male
  Weight: 72.6 kg

DRUGS (3)
  1. RHINOCORT AQUA [Suspect]
     Indication: SEASONAL ALLERGY
     Dosage: TWO SPRAYS IN EACH NOSTRIL - 32 MCG, TWICE DAILY
     Route: 045
  2. BABY ASPIRIN [Concomitant]
     Dosage: 81 MGS DAILY
     Route: 048
  3. ATENOLOL [Concomitant]
     Indication: BLOOD PRESSURE
     Route: 048

REACTIONS (2)
  - Dizziness [Not Recovered/Not Resolved]
  - Dizziness [Not Recovered/Not Resolved]
